FAERS Safety Report 22333975 (Version 1)
Quarter: 2023Q2

REPORT INFORMATION
  Report Type: Spontaneous
  Country: US (occurrence: US)
  Receive Date: 20230517
  Receipt Date: 20230517
  Transmission Date: 20230721
  Serious: Yes (Other)
  Sender: FDA-Public Use
  Company Number: US-OTSUKA-2023_012371

PATIENT
  Age: 60 Year
  Sex: Male
  Weight: 87.09 kg

DRUGS (2)
  1. NUEDEXTA [Suspect]
     Active Substance: DEXTROMETHORPHAN HYDROBROMIDE\QUINIDINE SULFATE
     Indication: Mood swings
     Dosage: 20-10 MG 1 CAPSULE BY MOUTH TWICE A DAY
     Route: 048
     Dates: start: 2018
  2. TOPAMAX [Suspect]
     Active Substance: TOPIRAMATE
     Indication: Product used for unknown indication
     Dosage: UNKNOWN
     Route: 065

REACTIONS (9)
  - Metastases to central nervous system [Unknown]
  - Lymphoma [Unknown]
  - Head injury [Recovered/Resolved]
  - Cerebrovascular accident [Unknown]
  - Fall [Recovered/Resolved]
  - Heat stroke [Unknown]
  - Therapy interrupted [Unknown]
  - Intentional product use issue [Unknown]
  - Product use in unapproved indication [Unknown]

NARRATIVE: CASE EVENT DATE: 20210201
